FAERS Safety Report 5600651-2 (Version None)
Quarter: 2008Q1

REPORT INFORMATION
  Report Type: 
  Country: None (occurrence: None)
  Receive Date: 20080123
  Receipt Date: 20080111
  Transmission Date: 20080703
  Serious: Yes (Hospitalization)
  Sender: FDA-Public Use
  Company Number: FR-GENENTECH-252328

PATIENT
  Age: 6 Year
  Sex: Female
  Weight: 18 kg

DRUGS (5)
  1. MABTHERA [Suspect]
     Indication: NEPHROTIC SYNDROME
     Dosage: UNK UNK, UNKNOWN
     Route: 042
     Dates: start: 20070615
  2. BACTRIM [Interacting]
     Indication: INFECTION PROPHYLAXIS
     Dosage: UNK, 3/WEEK
     Route: 048
  3. CELLCEPT [Interacting]
     Indication: NEPHROTIC SYNDROME
     Dosage: 880 MG, UNK
     Route: 048
  4. NEORAL [Concomitant]
     Indication: DRUG USE FOR UNKNOWN INDICATION
  5. CORTICOSTEROID (UNK INGREDIENTS) [Concomitant]
     Indication: DRUG USE FOR UNKNOWN INDICATION

REACTIONS (4)
  - DRUG INTERACTION [None]
  - GINGIVITIS [None]
  - NEUTROPENIA [None]
  - VIRAL INFECTION [None]
